FAERS Safety Report 8370102-6 (Version None)
Quarter: 2012Q2

REPORT INFORMATION
  Report Type: 
  Country: None (occurrence: None)
  Receive Date: 20120518
  Receipt Date: 20120514
  Transmission Date: 20120825
  Serious: No
  Sender: FDA-Public Use
  Company Number: US-ASTRAZENECA-2011SE41508

PATIENT
  Age: 59 Year
  Sex: Male

DRUGS (13)
  1. TRAMADOL HYDROCHLORIDE [Concomitant]
     Indication: PAIN
  2. LISINOPRIL [Concomitant]
     Indication: BLOOD PRESSURE
  3. DITYRIDAMOLE [Concomitant]
     Indication: ANTICOAGULANT THERAPY
  4. ASPIRIN [Concomitant]
     Indication: CEREBROVASCULAR ACCIDENT PROPHYLAXIS
  5. PRILOSEC [Concomitant]
     Indication: GASTRIC ULCER
     Dates: start: 20090101
  6. HYDROCODONE [Concomitant]
     Indication: PAIN
  7. CYCLOBENZAPRINE [Concomitant]
     Indication: PAIN
  8. DITYRIDAMOLE [Concomitant]
     Indication: CEREBROVASCULAR ACCIDENT PROPHYLAXIS
  9. CALCIUM CARBONATE [Concomitant]
     Dosage: 4 A DAY
     Dates: start: 20060101, end: 20090101
  10. DOXYAZOSIN [Concomitant]
     Indication: PROSTATOMEGALY
  11. NEXIUM [Suspect]
     Indication: GASTRIC ULCER
     Route: 048
     Dates: start: 20010101, end: 20060101
  12. GABATENTIN [Concomitant]
     Indication: PAIN
  13. METFORMIN HCL [Concomitant]
     Indication: DIABETES MELLITUS

REACTIONS (7)
  - ANDROGEN DEFICIENCY [None]
  - EMOTIONAL DISTRESS [None]
  - UPPER LIMB FRACTURE [None]
  - VITAMIN D DEFICIENCY [None]
  - OSTEOPOROSIS [None]
  - CALCIUM DEFICIENCY [None]
  - FOOT FRACTURE [None]
